FAERS Safety Report 4604190-7 (Version None)
Quarter: 2005Q1

REPORT INFORMATION
  Report Type: 
  Country: None (occurrence: None)
  Receive Date: 20050214
  Receipt Date: 20050106
  Transmission Date: 20050727
  Serious: No
  Sender: FDA-Public Use
  Company Number: USA050187763

PATIENT
  Age: 75 Year
  Sex: Male

DRUGS (7)
  1. CIALIS [Suspect]
     Dosage: 20 MG
  2. FUROSEMIDE [Concomitant]
  3. GLICAZIDE [Concomitant]
  4. GEMFIBOZIL [Concomitant]
  5. ROSIGLITAZONE [Concomitant]
  6. LISINOPRIL [Concomitant]
  7. METOPROLOL [Concomitant]

REACTIONS (1)
  - DRUG INEFFECTIVE [None]
